FAERS Safety Report 20975887 (Version 2)
Quarter: 2022Q3

REPORT INFORMATION
  Report Type: Spontaneous
  Country: ES (occurrence: None)
  Receive Date: 20220617
  Receipt Date: 20220708
  Transmission Date: 20221026
  Serious: Yes (Life-Threatening, Hospitalization, Disabling, Congenital Anomaly, Other)
  Sender: FDA-Public Use
  Company Number: 2022A220875

PATIENT
  Sex: Female

DRUGS (2)
  1. DAPAGLIFLOZIN [Suspect]
     Active Substance: DAPAGLIFLOZIN
     Indication: Type 1 diabetes mellitus
     Route: 015
     Dates: start: 20200701
  2. INSULIN FIASP [Concomitant]
     Indication: Type 1 diabetes mellitus
     Route: 065

REACTIONS (1)
  - VACTERL syndrome [Recovered/Resolved with Sequelae]

NARRATIVE: CASE EVENT DATE: 20220602
